FAERS Safety Report 6773325-2 (Version None)
Quarter: 2010Q2

REPORT INFORMATION
  Report Type: 
  Country: None (occurrence: None)
  Receive Date: 20100616
  Receipt Date: 20100319
  Transmission Date: 20101027
  Serious: No
  Sender: FDA-Public Use
  Company Number: US-ABBOTT-10P-163-0639820-00

PATIENT
  Sex: Male

DRUGS (4)
  1. TRILIPIX [Suspect]
     Indication: BLOOD TRIGLYCERIDES INCREASED
     Route: 048
     Dates: start: 20091001
  2. TRILIPIX [Suspect]
     Indication: HIGH DENSITY LIPOPROTEIN DECREASED
  3. BENICAR [Concomitant]
     Indication: HYPERTENSION
  4. HYDROCHLOROTHIAZIDE [Concomitant]
     Indication: HYPERTENSION

REACTIONS (1)
  - LOW DENSITY LIPOPROTEIN INCREASED [None]
